FAERS Safety Report 8244428-0 (Version None)
Quarter: 2012Q1

REPORT INFORMATION
  Report Type: 
  Country: None (occurrence: None)
  Receive Date: 20120329
  Receipt Date: 20120321
  Transmission Date: 20120608
  Serious: Yes (Life-Threatening, Hospitalization, Other)
  Sender: FDA-Public Use
  Company Number: US-BAYER-2011-032129

PATIENT
  Age: 30 Year
  Sex: Female
  Weight: 72.562 kg

DRUGS (2)
  1. IBUPROFEN [Concomitant]
  2. YAZ [Suspect]
     Indication: PREMENSTRUAL SYNDROME
     Dosage: UNK
     Dates: start: 20080901, end: 20090101

REACTIONS (7)
  - ANXIETY [None]
  - FATIGUE [None]
  - CHEST PAIN [None]
  - DEPRESSION [None]
  - PULMONARY EMBOLISM [None]
  - THROMBOSIS [None]
  - MENTAL DISORDER [None]
